FAERS Safety Report 9870893 (Version 1)
Quarter: 2014Q1

REPORT INFORMATION
  Report Type: Spontaneous
  Country: GB (occurrence: None)
  Receive Date: 20140203
  Receipt Date: 20140203
  Transmission Date: 20141002
  Serious: Yes (Other)
  Sender: FDA-Public Use
  Company Number: AUR-APL-2014-00751

PATIENT
  Age: 28 Year
  Sex: Male

DRUGS (2)
  1. LAMOTRIGINE [Suspect]
     Indication: PRODUCT USED FOR UNKNOWN INDICATION
  2. KEPPRA [Suspect]
     Indication: CONVULSION

REACTIONS (6)
  - Peripheral coldness [None]
  - Syncope [None]
  - Asthenia [None]
  - Muscular weakness [None]
  - Fall [None]
  - Mobility decreased [None]
